FAERS Safety Report 8830604 (Version 1)
Quarter: 2012Q4

REPORT INFORMATION
  Report Type: Spontaneous
  Country: GB (occurrence: None)
  Receive Date: 20121004
  Receipt Date: 20121004
  Transmission Date: 20130627
  Serious: Yes (Hospitalization)
  Sender: FDA-Public Use
  Company Number: AUR-APL-2012-04135

PATIENT
  Age: 58 Year
  Sex: Male
  Weight: 76.6 kg

DRUGS (6)
  1. SERTRALINE (SERTRALINE) (SERTRALINE) [Suspect]
     Indication: DEPRESSION
     Route: 048
  2. LORAZEPAM (LORAZEPAM) [Concomitant]
  3. PARACETAMOL (PARACETAMOL) [Concomitant]
  4. PROMETHAZINE (PROMETHAZINE) [Concomitant]
  5. TRAZODONE (TRAZODONE) [Concomitant]
  6. ZOPICLONE (ZOPICLONE) [Concomitant]

REACTIONS (6)
  - Anxiety [None]
  - Agitation [None]
  - Condition aggravated [None]
  - Suicidal ideation [None]
  - Self-injurious ideation [None]
  - Sleep disorder [None]
